FAERS Safety Report 15424043 (Version 1)
Quarter: 2018Q3

REPORT INFORMATION
  Report Type: Spontaneous
  Country: JP (occurrence: JP)
  Receive Date: 20180925
  Receipt Date: 20180925
  Transmission Date: 20181010
  Serious: Yes (Other)
  Sender: FDA-Public Use
  Company Number: JP-GLAXOSMITHKLINE-JP2018JPN170106

PATIENT
  Age: 8 Decade
  Sex: Female

DRUGS (1)
  1. MEPOLIZUMAB [Suspect]
     Active Substance: MEPOLIZUMAB
     Indication: ASTHMA
     Dosage: 100 MG, EVERY FOUR WEEKS
     Route: 058
     Dates: start: 2017

REACTIONS (4)
  - Drug effect decreased [Unknown]
  - Prinzmetal angina [Recovered/Resolved]
  - Eosinophil count increased [Unknown]
  - Inappropriate schedule of drug administration [Unknown]
